FAERS Safety Report 10379844 (Version 1)
Quarter: 2014Q3

REPORT INFORMATION
  Report Type: Spontaneous
  Country: FR (occurrence: FR)
  Receive Date: 20140812
  Receipt Date: 20140812
  Transmission Date: 20150326
  Serious: Yes (Hospitalization)
  Sender: FDA-Public Use
  Company Number: FR-ASTRAZENECA-2014SE56811

PATIENT
  Age: 4030 Week
  Sex: Female
  Weight: 43 kg

DRUGS (13)
  1. CRESTOR [Suspect]
     Active Substance: ROSUVASTATIN CALCIUM
     Route: 048
  2. BURINEX (NON AZ PRODUCT) [Suspect]
     Active Substance: BUMETANIDE
     Route: 048
     Dates: end: 20140517
  3. GLYCERYL TRINITRATE [Concomitant]
     Active Substance: NITROGLYCERIN
     Route: 062
  4. TANGANIL [Concomitant]
     Active Substance: ACETYLLEUCINE
     Route: 048
  5. BURINEX (NON AZ PRODUCT) [Suspect]
     Active Substance: BUMETANIDE
     Route: 048
  6. PANTOPRAZOLE [Concomitant]
     Active Substance: PANTOPRAZOLE SODIUM
     Route: 048
  7. NOCTAMIDE [Concomitant]
     Active Substance: LORMETAZEPAM
     Route: 048
  8. DAFALGAN [Concomitant]
     Active Substance: ACETAMINOPHEN
     Dosage: AS REQUIRED
  9. TRAMADOL [Concomitant]
     Active Substance: TRAMADOL
     Dosage: AS REQUIRED
  10. SIFROL [Suspect]
     Active Substance: PRAMIPEXOLE
     Route: 048
     Dates: start: 2014, end: 20140517
  11. CANDESARTAN CILEXETIL. [Suspect]
     Active Substance: CANDESARTAN CILEXETIL
     Route: 048
     Dates: end: 20140517
  12. CANDESARTAN CILEXETIL. [Suspect]
     Active Substance: CANDESARTAN CILEXETIL
     Route: 048
  13. KARDEGIC [Concomitant]
     Active Substance: ASPIRIN LYSINE
     Route: 048

REACTIONS (4)
  - Rhabdomyolysis [Recovering/Resolving]
  - Fall [Recovered/Resolved]
  - Malaise [Recovered/Resolved]
  - Renal failure [None]

NARRATIVE: CASE EVENT DATE: 20140516
